FAERS Safety Report 6466934-1 (Version None)
Quarter: 2009Q4

REPORT INFORMATION
  Report Type: 
  Country: None (occurrence: None)
  Receive Date: 20091202
  Receipt Date: 20091130
  Transmission Date: 20100525
  Serious: Yes (Death)
  Sender: FDA-Public Use
  Company Number: JP-JNJFOC-20091106118

PATIENT
  Sex: Female

DRUGS (7)
  1. ITRIZOLE [Suspect]
     Indication: DRUG USE FOR UNKNOWN INDICATION
     Route: 041
  2. MEROPENEM HYDRATE [Concomitant]
  3. SULFAMETHOXAZOLE [Concomitant]
  4. ARBEKACIN SULFATE [Concomitant]
  5. CORTICOSTEROID [Concomitant]
  6. SIVELESTAT [Concomitant]
  7. AMINOPHYLLINE [Concomitant]

REACTIONS (1)
  - DEATH [None]
